FAERS Safety Report 8213623-9 (Version None)
Quarter: 2012Q1

REPORT INFORMATION
  Report Type: 
  Country: None (occurrence: None)
  Receive Date: 20120315
  Receipt Date: 20120307
  Transmission Date: 20120608
  Serious: Yes (Hospitalization, Other)
  Sender: FDA-Public Use
  Company Number: US-B.I. PHARMACEUTICALS,INC./RIDGEFIELD-2012-BP-04369BP

PATIENT
  Sex: Male

DRUGS (1)
  1. FLOMAX [Suspect]
     Dosage: 3.2 MG
     Route: 048
     Dates: start: 20120222

REACTIONS (4)
  - INFLUENZA LIKE ILLNESS [None]
  - RASH ERYTHEMATOUS [None]
  - HEART TRANSPLANT REJECTION [None]
  - DRUG DISPENSING ERROR [None]
